FAERS Safety Report 21674905 (Version 1)
Quarter: 2022Q4

REPORT INFORMATION
  Report Type: Spontaneous
  Country: US (occurrence: None)
  Receive Date: 20221201
  Receipt Date: 20221201
  Transmission Date: 20230113
  Serious: Yes (Hospitalization)
  Sender: FDA-Public Use
  Company Number: None

PATIENT
  Age: 81 Year
  Sex: Male
  Weight: 70.81 kg

DRUGS (11)
  1. ERLEADA [Suspect]
     Active Substance: APALUTAMIDE
     Indication: Prostate cancer
     Dosage: FREQUENCY : DAILY;?
     Route: 048
     Dates: start: 202210
  2. ASPIRIN [Concomitant]
  3. CALCIUM [Concomitant]
  4. DIPHENHYDRAMINE HCI [Concomitant]
  5. EFUDEX EXTERNAL CREAM [Concomitant]
  6. FINASTERIDE ORAL [Concomitant]
  7. LOSARTAN POTASSIUM [Concomitant]
  8. SILODOSIN ORAL [Concomitant]
  9. SIMVASTATIN [Concomitant]
     Active Substance: SIMVASTATIN
  10. CHOLECALCIFEROL [Concomitant]
     Active Substance: CHOLECALCIFEROL
  11. ZETIA [Concomitant]
     Active Substance: EZETIMIBE

REACTIONS (1)
  - Gastritis [None]

NARRATIVE: CASE EVENT DATE: 20221125
